FAERS Safety Report 8830064 (Version 2)
Quarter: 2012Q4

REPORT INFORMATION
  Report Type: 
  Country: US (occurrence: US)
  Receive Date: 20121008
  Receipt Date: 20121106
  Transmission Date: 20130627
  Serious: Yes (Other)
  Sender: FDA-Public Use
  Company Number: US-VIROPHARMA INCORPORATED-20120925CINRY3417

PATIENT
  Age: 35 Year
  Sex: Female
  Weight: 90.8 kg

DRUGS (17)
  1. CINRYZE (C1 ESTERASE INHIBITOR (HUMAN)) [Suspect]
     Indication: HEREDITARY ANGIOEDEMA
     Dates: start: 20120103
  2. BERINERT [Suspect]
     Indication: HEREDITARY ANGIOEDEMA
     Route: 065
  3. COUMADIN [Concomitant]
     Indication: PRODUCT USED FOR UNKNOWN INDICATION
     Route: 065
  4. NORVASC [Concomitant]
     Indication: HYPERTENSION
     Route: 065
  5. MIRAPEX [Concomitant]
     Indication: RESTLESS LEGS SYNDROME
     Route: 065
  6. BUMEX [Concomitant]
     Indication: PRODUCT USED FOR UNKNOWN INDICATION
     Route: 065
  7. BENADRYL [Concomitant]
     Indication: URTICARIA
     Route: 065
  8. BENADRYL [Concomitant]
     Indication: PHARYNGEAL OEDEMA
  9. K-CHLOR [Concomitant]
     Indication: PRODUCT USED FOR UNKNOWN INDICATION
     Route: 065
  10. RANEXA [Concomitant]
     Indication: ANGINA PECTORIS
     Route: 065
  11. SINGULAR [Concomitant]
     Indication: ASTHMA
     Route: 065
  12. ZANTAC [Concomitant]
     Indication: PRODUCT USED FOR UNKNOWN INDICATION
     Route: 065
  13. ZYRTEC [Concomitant]
     Indication: HYPERSENSITIVITY
     Route: 065
  14. ZOFRAN [Concomitant]
     Indication: NAUSEA
     Route: 065
  15. ATENOLOL [Concomitant]
     Indication: HYPERTENSION
     Route: 065
  16. TOPAMAX [Concomitant]
     Indication: CONVULSION
     Dosage: unknown
     Route: 065
  17. CARDIZEM CD [Concomitant]
     Indication: HYPERTENSION
     Route: 065

REACTIONS (11)
  - Sepsis [Recovering/Resolving]
  - Convulsion [Unknown]
  - Nausea [Unknown]
  - Therapy regimen changed [Not Recovered/Not Resolved]
  - Pruritus generalised [Recovered/Resolved]
  - Urticaria [Recovered/Resolved]
  - Unevaluable event [Not Recovered/Not Resolved]
  - Abdominal pain [Recovered/Resolved]
  - Abdominal pain [Recovered/Resolved]
  - Laryngeal oedema [Recovering/Resolving]
  - Swelling face [Recovering/Resolving]
